APPROVED DRUG PRODUCT: CIMETIDINE
Active Ingredient: CIMETIDINE
Strength: 800MG
Dosage Form/Route: TABLET;ORAL
Application: A074506 | Product #004
Applicant: UPSHER SMITH LABORATORIES LLC
Approved: Jan 24, 1996 | RLD: No | RS: No | Type: DISCN